FAERS Safety Report 17748520 (Version 1)
Quarter: 2020Q2

REPORT INFORMATION
  Report Type: Spontaneous
  Country: US (occurrence: US)
  Receive Date: 20200505
  Receipt Date: 20200505
  Transmission Date: 20200714
  Serious: No
  Sender: FDA-Public Use
  Company Number: US-ROCHE-2452185

PATIENT
  Sex: Female

DRUGS (1)
  1. ESBRIET [Suspect]
     Active Substance: PIRFENIDONE
     Indication: IDIOPATHIC PULMONARY FIBROSIS
     Route: 048
     Dates: start: 20190926

REACTIONS (11)
  - Photophobia [Unknown]
  - Dizziness [Unknown]
  - Nausea [Unknown]
  - Alopecia [Unknown]
  - Weight decreased [Unknown]
  - Eye pruritus [Unknown]
  - Pruritus [Unknown]
  - Visual acuity reduced [Unknown]
  - Abdominal discomfort [Unknown]
  - Skin exfoliation [Unknown]
  - Constipation [Not Recovered/Not Resolved]
